FAERS Safety Report 15109762 (Version 2)
Quarter: 2018Q3

REPORT INFORMATION
  Report Type: Report from Study
  Country: CA (occurrence: CA)
  Receive Date: 20180705
  Receipt Date: 20180817
  Transmission Date: 20181010
  Serious: Yes (Other)
  Sender: FDA-Public Use
  Company Number: CA-GLAXOSMITHKLINE-CA2018GSK107906

PATIENT
  Age: 78 Year
  Sex: Male

DRUGS (4)
  1. PULMICORT TURBUHALER [Concomitant]
     Active Substance: BUDESONIDE
     Indication: PRODUCT USED FOR UNKNOWN INDICATION
     Dosage: UNK
  2. FLUTICASONE FUROATE + VILANTEROL TRIFENATATE [Suspect]
     Active Substance: FLUTICASONE FUROATE\VILANTEROL TRIFENATATE
     Indication: ASTHMA
     Dosage: UNK
  3. NUCALA [Suspect]
     Active Substance: MEPOLIZUMAB
     Indication: ASTHMA
     Dosage: 100 MG, Z
     Route: 042
  4. VENTOLIN [Suspect]
     Active Substance: ALBUTEROL SULFATE
     Indication: ASTHMA
     Dosage: 4 PUFF(S), UNK

REACTIONS (20)
  - Arthritis [Unknown]
  - Pruritus [Unknown]
  - Rales [Unknown]
  - Blood count abnormal [Unknown]
  - Wheezing [Unknown]
  - Asthma [Unknown]
  - Upper-airway cough syndrome [Unknown]
  - Poor quality sleep [Unknown]
  - Sputum discoloured [Unknown]
  - Atelectasis [Unknown]
  - Pneumonia [Unknown]
  - Obstructive airways disorder [Unknown]
  - Cough [Unknown]
  - Cardiac murmur [Unknown]
  - Drug ineffective [Unknown]
  - Dry skin [Unknown]
  - Acquired diaphragmatic eventration [Unknown]
  - Productive cough [Unknown]
  - Hypersensitivity [Unknown]
  - Dyspnoea exertional [Unknown]

NARRATIVE: CASE EVENT DATE: 201611
